FAERS Safety Report 16164407 (Version 1)
Quarter: 2019Q2

REPORT INFORMATION
  Report Type: Spontaneous
  Country: DE (occurrence: DE)
  Receive Date: 20190405
  Receipt Date: 20190405
  Transmission Date: 20190711
  Serious: Yes (Death, Hospitalization)
  Sender: FDA-Public Use
  Company Number: DE-ASTRAZENECA-2019SE52190

PATIENT
  Age: 50 Year
  Sex: Male

DRUGS (1)
  1. BRILIQUE [Suspect]
     Active Substance: TICAGRELOR
     Indication: CARDIAC FAILURE
     Route: 048

REACTIONS (6)
  - Haematemesis [Fatal]
  - Product use in unapproved indication [Unknown]
  - Off label use [Unknown]
  - Melaena [Fatal]
  - Gastric ulcer perforation [Fatal]
  - Gastric haemorrhage [Fatal]
